FAERS Safety Report 22074180 (Version 1)
Quarter: 2023Q1

REPORT INFORMATION
  Report Type: Spontaneous
  Country: FR (occurrence: FR)
  Receive Date: 20230308
  Receipt Date: 20230308
  Transmission Date: 20230417
  Serious: Yes (Other)
  Sender: FDA-Public Use
  Company Number: FR-ROCHE-3295171

PATIENT
  Age: 51 Year
  Sex: Male
  Weight: 99 kg

DRUGS (6)
  1. DOXORUBICIN HYDROCHLORIDE [Suspect]
     Active Substance: DOXORUBICIN HYDROCHLORIDE
     Indication: Follicular lymphoma
     Dosage: 100 MG
     Route: 042
     Dates: start: 202101, end: 202105
  2. VINCRISTINE SULFATE [Suspect]
     Active Substance: VINCRISTINE SULFATE
     Indication: Follicular lymphoma
     Dosage: 2 MG
     Route: 042
     Dates: start: 202101, end: 202105
  3. BACTRIM [Suspect]
     Active Substance: SULFAMETHOXAZOLE\TRIMETHOPRIM
     Indication: Infection prophylaxis
     Dosage: 1 TABX3/WEEK (MONDAY, WEDNESDAY, FRIDAY)
     Route: 048
     Dates: start: 202101, end: 20230202
  4. CYCLOPHOSPHAMIDE [Suspect]
     Active Substance: CYCLOPHOSPHAMIDE
     Indication: Follicular lymphoma
     Dosage: 1500 MG
     Route: 042
     Dates: start: 202101, end: 202105
  5. OBINUTUZUMAB [Suspect]
     Active Substance: OBINUTUZUMAB
     Indication: Follicular lymphoma
     Dosage: 1000 MG
     Route: 042
     Dates: start: 202101
  6. VALACYCLOVIR HYDROCHLORIDE [Suspect]
     Active Substance: VALACYCLOVIR HYDROCHLORIDE
     Indication: Infection prophylaxis
     Dosage: 500 MG, 1X/DAY
     Route: 048
     Dates: start: 202101, end: 20230208

REACTIONS (4)
  - Jugular vein thrombosis [Unknown]
  - Disturbance in attention [Not Recovered/Not Resolved]
  - Dysphemia [Not Recovered/Not Resolved]
  - Visual impairment [Not Recovered/Not Resolved]

NARRATIVE: CASE EVENT DATE: 20210101
